FAERS Safety Report 5694471-0 (Version None)
Quarter: 2008Q2

REPORT INFORMATION
  Report Type: 
  Country: None (occurrence: None)
  Receive Date: 20080404
  Receipt Date: 20080325
  Transmission Date: 20081010
  Serious: Yes (Other)
  Sender: FDA-Public Use
  Company Number: PHHY2008JP03768

PATIENT
  Sex: Male

DRUGS (4)
  1. CHEMOTHERAPEUTICS [Concomitant]
  2. STEROIDS NOS [Concomitant]
  3. ZOMETA [Suspect]
     Indication: METASTASES TO BONE
     Route: 042
  4. ZOMETA [Suspect]
     Route: 042

REACTIONS (1)
  - OSTEONECROSIS [None]
